FAERS Safety Report 4408854-X (Version None)
Quarter: 2004Q3

REPORT INFORMATION
  Report Type: 
  Country: None (occurrence: None)
  Receive Date: 20040727
  Receipt Date: 20040720
  Transmission Date: 20050211
  Serious: Yes (Hospitalization)
  Sender: FDA-Public Use
  Company Number: JP-GLAXOSMITHKLINE-A0519505A

PATIENT
  Age: 60 Year
  Sex: Male

DRUGS (2)
  1. NAVELBINE [Suspect]
     Dates: start: 20040302, end: 20040309
  2. AMRUBICIN HYDROCHLORIDE [Suspect]

REACTIONS (6)
  - BACK PAIN [None]
  - DEEP VEIN THROMBOSIS [None]
  - HAEMATOMA [None]
  - OEDEMA PERIPHERAL [None]
  - PAIN IN EXTREMITY [None]
  - THROMBOSIS [None]
